FAERS Safety Report 8154981-3 (Version None)
Quarter: 2012Q1

REPORT INFORMATION
  Report Type: 
  Country: None (occurrence: None)
  Receive Date: 20120221
  Receipt Date: 20120215
  Transmission Date: 20120608
  Serious: Yes (Other)
  Sender: FDA-Public Use
  Company Number: PHHY2012CA013663

PATIENT
  Sex: Male

DRUGS (2)
  1. LIPITOR [Concomitant]
  2. ZOLEDRONOC ACID [Suspect]
     Indication: OSTEOPOROSIS
     Dosage: UNK
     Route: 042
     Dates: start: 20120213

REACTIONS (4)
  - MYALGIA [None]
  - NAUSEA [None]
  - ASTHENIA [None]
  - CHEST PAIN [None]
